FAERS Safety Report 21038077 (Version 1)
Quarter: 2022Q3

REPORT INFORMATION
  Report Type: Report from Study
  Country: KR (occurrence: KR)
  Receive Date: 20220704
  Receipt Date: 20220704
  Transmission Date: 20221027
  Serious: Yes (Hospitalization)
  Sender: FDA-Public Use
  Company Number: KR-CELLTRION INC.-2019KR024255

PATIENT

DRUGS (5)
  1. HERZUMA [Suspect]
     Active Substance: TRASTUZUMAB-PKRB
     Indication: HER2 positive gastric cancer
     Dosage: 306 MG, 3 WEEK(S)
     Route: 042
     Dates: start: 20190816, end: 20190816
  2. EMEND [Concomitant]
     Active Substance: APREPITANT
     Indication: Prophylaxis of nausea and vomiting
     Dosage: 1 TAB, QD
     Route: 048
     Dates: start: 20190816, end: 20190817
  3. MACPERAN [METOCLOPRAMIDE] [Concomitant]
     Indication: Prophylaxis of nausea and vomiting
     Dosage: 3 TAB, TID
     Route: 048
     Dates: start: 20190816, end: 20190820
  4. FLASINYL [Concomitant]
     Indication: Diarrhoea
     Dosage: 6 TAB, TID
     Route: 048
     Dates: start: 20190830
  5. TRAMADOL HYDROCHLORIDE [Concomitant]
     Active Substance: TRAMADOL HYDROCHLORIDE
     Indication: Cancer pain
     Dosage: 2 CAP, BID
     Route: 048
     Dates: start: 20190827

REACTIONS (1)
  - Cerebrovascular accident [Recovering/Resolving]

NARRATIVE: CASE EVENT DATE: 20190823
